FAERS Safety Report 7966076-X (Version None)
Quarter: 2011Q4

REPORT INFORMATION
  Report Type: 
  Country: None (occurrence: None)
  Receive Date: 20111121
  Receipt Date: 20110928
  Transmission Date: 20120403
  Serious: No
  Sender: FDA-Public Use
  Company Number: 1000024292

PATIENT
  Age: 47 Year
  Sex: Male

DRUGS (4)
  1. VIIBRYD [Suspect]
     Indication: DEPRESSION
     Dosage: 10;20;40 MG (10;20;40 MG, 1 IN 1 D),ORAL
     Route: 048
     Dates: start: 20110801, end: 20110901
  2. VIIBRYD [Suspect]
     Indication: DEPRESSION
     Dosage: 10;20;40 MG (10;20;40 MG, 1 IN 1 D),ORAL
     Route: 048
     Dates: start: 20110901, end: 20110901
  3. VIIBRYD [Suspect]
     Indication: DEPRESSION
     Dosage: 10;20;40 MG (10;20;40 MG, 1 IN 1 D),ORAL
     Route: 048
     Dates: start: 20110901
  4. LITHIUM CARBONATE [Concomitant]

REACTIONS (1)
  - DIARRHOEA [None]
